FAERS Safety Report 4926205-9 (Version None)
Quarter: 2006Q1

REPORT INFORMATION
  Report Type: 
  Country: None (occurrence: None)
  Receive Date: 20060224
  Receipt Date: 20060224
  Transmission Date: 20060701
  Serious: Yes (Hospitalization, Other)
  Sender: FDA-Public Use
  Company Number: None

PATIENT
  Sex: Female
  Weight: 81.2 kg

DRUGS (4)
  1. CYCLOPHOSPHAMIDE [Suspect]
     Indication: BREAST CANCER
     Dosage: 600 MG
     Dates: start: 20060209, end: 20060209
  2. DOXORUBICIN HCL [Suspect]
     Dosage: 60 MG
     Dates: end: 20060206
  3. DECADRON SRC [Concomitant]
  4. EMEND [Concomitant]

REACTIONS (1)
  - PULMONARY EMBOLISM [None]
